FAERS Safety Report 25955392 (Version 2)
Quarter: 2025Q4

REPORT INFORMATION
  Report Type: Spontaneous
  Country: US (occurrence: US)
  Receive Date: 20251024
  Receipt Date: 20251107
  Transmission Date: 20260118
  Serious: Yes (Other)
  Sender: TORRENT PHARMA INC.
  Company Number: US-TORRENT-00014563

PATIENT
  Age: 56 Year
  Sex: Male

DRUGS (1)
  1. CITALOPRAM [Suspect]
     Active Substance: CITALOPRAM
     Indication: Depression
     Dosage: CITALOPRAM 30 MG, FOR 22 YEARS
     Route: 048
     Dates: start: 2003, end: 2025

REACTIONS (9)
  - Vestibular migraine [Unknown]
  - Withdrawal syndrome [Recovered/Resolved]
  - Vertigo [Unknown]
  - Headache [Unknown]
  - Nausea [Unknown]
  - Tinnitus [Unknown]
  - Nystagmus [Recovered/Resolved]
  - Deafness [Recovered/Resolved]
  - Migraine [Recovered/Resolved]

NARRATIVE: CASE EVENT DATE: 20250101
